FAERS Safety Report 4413060-9 (Version None)
Quarter: 2004Q3

REPORT INFORMATION
  Report Type: 
  Country: None (occurrence: None)
  Receive Date: 20040802
  Receipt Date: 20040802
  Transmission Date: 20050211
  Serious: Yes (Hospitalization, Disabling)
  Sender: FDA-Public Use
  Company Number: None

PATIENT
  Sex: Female
  Weight: 88.4514 kg

DRUGS (1)
  1. EFFEXOR XR [Suspect]
     Indication: DEPRESSION
     Dosage: 225 MG ONCE DAILY ORAL
     Route: 048
     Dates: start: 20030401, end: 20040331

REACTIONS (13)
  - AGGRESSION [None]
  - BLOOD PRESSURE INCREASED [None]
  - CHILLS [None]
  - CONVULSION [None]
  - DEPRESSION [None]
  - HEADACHE [None]
  - HYPERHIDROSIS [None]
  - MANIA [None]
  - PHOTOSENSITIVITY REACTION [None]
  - SENSORY DISTURBANCE [None]
  - SLEEP TERROR [None]
  - TREMOR [None]
  - VOMITING PROJECTILE [None]
